FAERS Safety Report 20412693 (Version 3)
Quarter: 2024Q1

REPORT INFORMATION
  Report Type: Spontaneous
  Country: US (occurrence: US)
  Receive Date: 20220201
  Receipt Date: 20240122
  Transmission Date: 20240410
  Serious: Yes (Other)
  Sender: FDA-Public Use
  Company Number: US-VERTEX PHARMACEUTICALS-2022-001608

PATIENT
  Sex: Female
  Weight: 58 kg

DRUGS (5)
  1. TRIKAFTA [Suspect]
     Active Substance: ELEXACAFTOR\IVACAFTOR\TEZACAFTOR
     Indication: Cystic fibrosis
     Dosage: HALF DOSE
     Route: 048
     Dates: start: 2021
  2. TRIKAFTA [Suspect]
     Active Substance: ELEXACAFTOR\IVACAFTOR\TEZACAFTOR
     Dosage: FULL DOSE
     Route: 048
     Dates: start: 202110
  3. TRIKAFTA [Suspect]
     Active Substance: ELEXACAFTOR\IVACAFTOR\TEZACAFTOR
     Dosage: SWAPPED MORNING AND EVENING PILLS
     Route: 048
  4. TRIKAFTA [Suspect]
     Active Substance: ELEXACAFTOR\IVACAFTOR\TEZACAFTOR
     Dosage: 2 ORANGE TABS IN AM ON TUE AND FRI, DO NOT TAKE ANY BLUE TAB
     Route: 048
  5. PREDNISONE [Suspect]
     Active Substance: PREDNISONE
     Indication: Product used for unknown indication
     Dosage: DAILY
     Route: 065

REACTIONS (29)
  - Insomnia [Not Recovered/Not Resolved]
  - Weight increased [Unknown]
  - Mood altered [Unknown]
  - Fatigue [Unknown]
  - Steroid diabetes [Unknown]
  - Stress [Unknown]
  - Gastrooesophageal reflux disease [Not Recovered/Not Resolved]
  - Secretion discharge [Recovered/Resolved]
  - Cough [Unknown]
  - Pyrexia [Unknown]
  - Dyspnoea [Unknown]
  - Swelling face [Unknown]
  - Feeling abnormal [Unknown]
  - Malaise [Unknown]
  - Irritability [Unknown]
  - Peripheral swelling [Unknown]
  - Sensitive skin [Unknown]
  - Somnolence [Unknown]
  - Hunger [Unknown]
  - Dehydration [Unknown]
  - Osteoporosis [Unknown]
  - Seasonal affective disorder [Unknown]
  - Brain fog [Unknown]
  - Anger [Unknown]
  - Anxiety [Unknown]
  - Nausea [Unknown]
  - Vision blurred [Unknown]
  - Depressed mood [Unknown]
  - Abdominal distension [Unknown]
